FAERS Safety Report 8913071 (Version 1)
Quarter: 2012Q4

REPORT INFORMATION
  Report Type: Spontaneous
  Country: DE (occurrence: None)
  Receive Date: 20121113
  Receipt Date: 20121113
  Transmission Date: 20130627
  Serious: Yes (Hospitalization, Disabling)
  Sender: FDA-Public Use
  Company Number: DE-009639

PATIENT
  Age: 28 Year
  Sex: Female

DRUGS (3)
  1. PENTASA [Suspect]
     Indication: CROHN^S DISEASE
     Route: 048
     Dates: start: 20100831, end: 20120924
  2. CIPROHEXAL /00697201/ [Concomitant]
  3. CEFUROXIM /00454602/ [Concomitant]

REACTIONS (4)
  - Tubulointerstitial nephritis [None]
  - Renal failure chronic [None]
  - Monoclonal gammopathy [None]
  - Nephrosclerosis [None]
